FAERS Safety Report 9332911 (Version 1)
Quarter: 2013Q2

REPORT INFORMATION
  Report Type: Spontaneous
  Country: US (occurrence: US)
  Receive Date: 20130606
  Receipt Date: 20130606
  Transmission Date: 20140414
  Serious: Yes (Life-Threatening, Hospitalization)
  Sender: FDA-Public Use
  Company Number: US-MYLANLABS-2013S1011502

PATIENT
  Age: 73 Year
  Sex: Female

DRUGS (4)
  1. PROCHLORPERAZINE [Suspect]
     Indication: NAUSEA
     Route: 065
  2. PROCHLORPERAZINE [Suspect]
     Indication: VOMITING
     Route: 065
  3. SERTRALINE [Suspect]
     Indication: DEPRESSION
     Route: 065
  4. IFOSFAMIDE [Suspect]
     Indication: MUELLER^S MIXED TUMOUR
     Route: 065

REACTIONS (3)
  - Serotonin syndrome [Recovering/Resolving]
  - Nausea [Unknown]
  - Vomiting [Unknown]
